FAERS Safety Report 8596366 (Version 7)
Quarter: 2014Q2

REPORT INFORMATION
  Report Type: Report from Study
  Country: AU (occurrence: AU)
  Receive Date: 20120605
  Receipt Date: 20140509
  Transmission Date: 20141212
  Serious: Yes (Hospitalization, Other)
  Sender: FDA-Public Use
  Company Number: PHHY2012AU045774

PATIENT
  Age: 19 Year
  Sex: Male
  Weight: 109 kg

DRUGS (4)
  1. CLOZARIL [Suspect]
     Indication: SCHIZOPHRENIA, PARANOID TYPE
     Dosage: 300 MG
     Route: 048
     Dates: start: 20100807, end: 2010
  2. CLOZARIL [Suspect]
     Dosage: UNK
     Dates: start: 201104
  3. CLOZARIL [Suspect]
     Dosage: 300 MG
     Route: 048
     Dates: end: 20121123
  4. CLOPINE [Suspect]

REACTIONS (11)
  - Cardiac disorder [Unknown]
  - Electrocardiogram abnormal [Unknown]
  - Dilatation ventricular [Unknown]
  - Left ventricular dysfunction [Unknown]
  - Ejection fraction decreased [Unknown]
  - Atrial septal defect [Unknown]
  - Cardiac aneurysm [Unknown]
  - Left atrial dilatation [Unknown]
  - Myocardial ischaemia [Unknown]
  - Hypotension [Unknown]
  - Mental disorder [Not Recovered/Not Resolved]
